FAERS Safety Report 12550307 (Version 1)
Quarter: 2016Q3

REPORT INFORMATION
  Report Type: Spontaneous
  Country: US (occurrence: US)
  Receive Date: 20160712
  Receipt Date: 20160712
  Transmission Date: 20161109
  Serious: No
  Sender: FDA-Public Use
  Company Number: GXBR2016US001339

PATIENT
  Age: 44 Year
  Sex: Female

DRUGS (1)
  1. AMPICILLIN CAPSULES USP [Suspect]
     Active Substance: AMPICILLIN
     Indication: ACNE
     Dosage: 500 MG, BID
     Route: 048
     Dates: start: 20151228

REACTIONS (2)
  - Acne [Recovered/Resolved]
  - Drug ineffective [Recovered/Resolved]
